FAERS Safety Report 20597978 (Version 1)
Quarter: 2022Q1

REPORT INFORMATION
  Report Type: Spontaneous
  Country: CA (occurrence: CA)
  Receive Date: 20220315
  Receipt Date: 20220315
  Transmission Date: 20220423
  Serious: Yes (Hospitalization)
  Sender: FDA-Public Use
  Company Number: CA-PFIZER INC-202200381467

PATIENT
  Age: 90 Year
  Sex: Male

DRUGS (4)
  1. HYDROMORPHONE HYDROCHLORIDE [Suspect]
     Active Substance: HYDROMORPHONE HYDROCHLORIDE
     Dosage: 1 MG
  2. TRAZODONE [Suspect]
     Active Substance: TRAZODONE HYDROCHLORIDE
     Dosage: 50 MG
  3. IBUPROFEN [Concomitant]
     Active Substance: IBUPROFEN
     Dosage: UNK
  4. TINZAPARIN [Concomitant]
     Active Substance: TINZAPARIN
     Dosage: UNK

REACTIONS (4)
  - Acute kidney injury [Unknown]
  - Anaemia [Unknown]
  - Confusional state [Unknown]
  - Muscular weakness [Unknown]
